FAERS Safety Report 14817048 (Version 1)
Quarter: 2018Q2

REPORT INFORMATION
  Report Type: Spontaneous
  Country: JP (occurrence: JP)
  Receive Date: 20180426
  Receipt Date: 20180426
  Transmission Date: 20180711
  Serious: Yes (Hospitalization, Other)
  Sender: FDA-Public Use
  Company Number: JP-PFIZER INC-2017551171

PATIENT
  Age: 68 Year
  Sex: Female

DRUGS (2)
  1. RHEUMATREX [Suspect]
     Active Substance: METHOTREXATE SODIUM
     Dosage: 8 MG, UNK
     Dates: end: 20171114
  2. XELJANZ [Suspect]
     Active Substance: TOFACITINIB CITRATE
     Indication: RHEUMATOID ARTHRITIS
     Dosage: 5 MG, 2X/DAY
     Route: 048
     Dates: start: 20160316, end: 20171113

REACTIONS (8)
  - Fungal infection [Unknown]
  - Cryptococcosis [Unknown]
  - Blood cholesterol increased [Unknown]
  - Pneumonia streptococcal [Recovering/Resolving]
  - Lung neoplasm malignant [Unknown]
  - Supraventricular tachycardia [Unknown]
  - Hypertension [Unknown]
  - High density lipoprotein increased [Unknown]

NARRATIVE: CASE EVENT DATE: 20160316
